FAERS Safety Report 17553453 (Version 1)
Quarter: 2020Q1

REPORT INFORMATION
  Report Type: Spontaneous
  Country: US (occurrence: US)
  Receive Date: 20200317
  Receipt Date: 20200317
  Transmission Date: 20200409
  Serious: No
  Sender: FDA-Public Use
  Company Number: US-009507513-2003USA004898

PATIENT
  Sex: Female

DRUGS (1)
  1. MOMETASONE FUROATE. [Suspect]
     Active Substance: MOMETASONE FUROATE
     Indication: INNER EAR INFLAMMATION
     Dosage: UNK
     Route: 061
     Dates: start: 2010

REACTIONS (1)
  - Application site burn [Recovered/Resolved]

NARRATIVE: CASE EVENT DATE: 2010
